FAERS Safety Report 7807604-4 (Version None)
Quarter: 2011Q4

REPORT INFORMATION
  Report Type: 
  Country: None (occurrence: None)
  Receive Date: 20111011
  Receipt Date: 20110926
  Transmission Date: 20120403
  Serious: Yes (Hospitalization)
  Sender: FDA-Public Use
  Company Number: ES-MUTUAL PHARMACEUTICAL COMPANY, INC.-MTCD20110025

PATIENT
  Age: 64 Year
  Sex: Male

DRUGS (2)
  1. METOCLOPRAMIDE [Suspect]
     Indication: DIZZINESS
  2. METOCLOPRAMIDE [Suspect]
     Indication: VOMITING
     Route: 030

REACTIONS (1)
  - ELECTROCARDIOGRAM ABNORMAL [None]
